FAERS Safety Report 6223426-2 (Version None)
Quarter: 2009Q2

REPORT INFORMATION
  Report Type: 
  Country: None (occurrence: None)
  Receive Date: 20090611
  Receipt Date: 20090603
  Transmission Date: 20091009
  Serious: Yes (Other)
  Sender: FDA-Public Use
  Company Number: US-PFIZER INC-2009214743

PATIENT
  Sex: Male
  Weight: 113 kg

DRUGS (3)
  1. LIPITOR [Suspect]
     Indication: BLOOD CHOLESTEROL INCREASED
     Dosage: 40 MG, 1X/DAY
     Route: 048
     Dates: start: 20090320
  2. CELEXA [Concomitant]
     Dosage: UNK
  3. VYTORIN [Concomitant]
     Dates: end: 20090301

REACTIONS (7)
  - CHOLELITHIASIS [None]
  - FATIGUE [None]
  - FLATULENCE [None]
  - HEPATIC STEATOSIS [None]
  - OBESITY [None]
  - SPLENOMEGALY [None]
  - WEIGHT DECREASED [None]
